FAERS Safety Report 15318272 (Version 1)
Quarter: 2018Q3

REPORT INFORMATION
  Report Type: Spontaneous
  Country: US (occurrence: US)
  Receive Date: 20180817
  Receipt Date: 20180817
  Transmission Date: 20181010
  Serious: Yes (Hospitalization)
  Sender: FDA-Public Use
  Company Number: None

PATIENT
  Age: 67 Year
  Sex: Male

DRUGS (11)
  1. AMLODIPINE [Concomitant]
     Active Substance: AMLODIPINE BESYLATE
  2. FUROSEMIDE. [Concomitant]
     Active Substance: FUROSEMIDE
  3. MULTI VITAMIN [Concomitant]
     Active Substance: VITAMINS
  4. NORTRIPYLIN [Concomitant]
  5. NITROGLYCERIN. [Concomitant]
     Active Substance: NITROGLYCERIN
  6. HUMIRA [Suspect]
     Active Substance: ADALIMUMAB
     Indication: CROHN^S DISEASE
     Route: 058
     Dates: start: 201512
  7. POT CHLORIDE [Concomitant]
     Active Substance: POTASSIUM CHLORIDE
  8. TRAMADOL. [Concomitant]
     Active Substance: TRAMADOL
  9. ISOSORB MONO [Concomitant]
     Active Substance: ISOSORBIDE MONONITRATE
  10. METOPROL SUC [Concomitant]
  11. ATORVASTATIN [Concomitant]
     Active Substance: ATORVASTATIN

REACTIONS (2)
  - Intentional dose omission [None]
  - Cardiac operation [None]

NARRATIVE: CASE EVENT DATE: 20160731
